FAERS Safety Report 17195675 (Version 1)
Quarter: 2020Q1

REPORT INFORMATION
  Report Type: Spontaneous
  Country: US (occurrence: US)
  Receive Date: 20191223
  Receipt Date: 20191223
  Transmission Date: 20200409
  Serious: Yes (Death)
  Sender: FDA-Public Use
  Company Number: None

PATIENT
  Age: 74 Year
  Sex: Male

DRUGS (8)
  1. XARELTO [Concomitant]
     Active Substance: RIVAROXABAN
     Dates: start: 20190726, end: 20191221
  2. ATORVASTATIN TAB 20MG [Concomitant]
     Dates: start: 20190726, end: 20191221
  3. JANUVIA TAB 50MG [Concomitant]
     Dates: start: 20190726, end: 20191221
  4. AMIODARONE TAB 200MG [Concomitant]
     Active Substance: AMIODARONE
     Dates: start: 20190726, end: 20191221
  5. CAPECITABINE. [Suspect]
     Active Substance: CAPECITABINE
     Indication: BREAST CANCER MALE
     Route: 048
     Dates: start: 20190730, end: 20191221
  6. ONDANSETRON TAB 4MG [Concomitant]
     Active Substance: ONDANSETRON
     Dates: start: 20190726, end: 20191221
  7. CARVEDILOL TAB 6.25MG [Concomitant]
     Active Substance: CARVEDILOL
     Dates: start: 20190726, end: 20191221
  8. TRAMADOL HCL TAB 50MG [Concomitant]
     Dates: start: 20190726, end: 20191221

REACTIONS (1)
  - Death [None]

NARRATIVE: CASE EVENT DATE: 20191221
